FAERS Safety Report 7609330-3 (Version None)
Quarter: 2011Q3

REPORT INFORMATION
  Report Type: 
  Country: None (occurrence: None)
  Receive Date: 20110714
  Receipt Date: 20110705
  Transmission Date: 20111222
  Serious: Yes (Death, Other)
  Sender: FDA-Public Use
  Company Number: PHHY2011JP61621

PATIENT
  Age: 72 Year
  Sex: Male
  Weight: 56 kg

DRUGS (26)
  1. EXJADE [Suspect]
     Dosage: 1000 MG, DAILY
     Route: 048
     Dates: start: 20101208, end: 20101210
  2. ALDACTONE [Concomitant]
     Dosage: 50 MG, UNK
     Route: 048
     Dates: start: 20101103, end: 20101106
  3. OMEPRAZON [Concomitant]
     Indication: PROPHYLAXIS
     Dosage: 20 MG, UNK
     Route: 048
     Dates: end: 20101202
  4. MAGMITT [Concomitant]
     Dosage: 1980 MG, UNK
     Route: 048
     Dates: start: 20100709
  5. LASIX [Concomitant]
     Dosage: 20 MG, UNK
     Route: 048
     Dates: start: 20101015
  6. ITRACONAZOLE [Concomitant]
     Dosage: 200 MG, UNK
     Route: 048
     Dates: start: 20100825, end: 20101106
  7. NEUTROGIN [Concomitant]
     Dosage: 250 UG, UNK
     Route: 058
     Dates: start: 20100918
  8. ROCEPHIN [Concomitant]
     Dosage: 4 G, UNK
     Route: 041
     Dates: start: 20101026, end: 20101129
  9. EXJADE [Suspect]
     Dosage: 1000 MG, DAILY
     Route: 048
     Dates: start: 20101126, end: 20101202
  10. POTASSIUM GLUCONATE TAB [Concomitant]
     Dosage: 7.5 G, UNK
     Route: 048
     Dates: start: 20101030
  11. ADONA [Concomitant]
     Dosage: 90 MG, UNK
     Route: 048
     Dates: start: 20101030, end: 20101106
  12. CIPROFLOXACIN HCL [Concomitant]
     Dosage: 600 MG, UNK
     Route: 041
     Dates: start: 20101021
  13. VANCOMYCIN [Concomitant]
     Dosage: 2 G, UNK
     Route: 041
     Dates: end: 20101207
  14. EXJADE [Suspect]
     Indication: MYELODYSPLASTIC SYNDROME
     Dosage: 1000 MG, DAILY
     Route: 048
     Dates: start: 20101103, end: 20101107
  15. CIPROFLOXACIN HCL [Concomitant]
     Dosage: 600 MG, UNK
     Route: 041
     Dates: end: 20101129
  16. VANCOMYCIN [Concomitant]
     Dosage: 1.5 G, UNK
     Route: 041
     Dates: start: 20101106
  17. POTASSIUM GLUCONATE TAB [Concomitant]
     Dosage: 7.5 G, UNK
     Route: 048
  18. ZOLPIDEM [Concomitant]
     Dosage: 5 MG, UNK
     Route: 048
     Dates: start: 20101112, end: 20101202
  19. OMEGACIN [Concomitant]
     Dosage: 1.2 G, UNK
     Route: 041
     Dates: start: 20101129
  20. FUNGUARD [Concomitant]
     Dosage: 100 MG, UNK
     Route: 041
     Dates: start: 20101128
  21. SANDOGLOBULIN [Concomitant]
     Dosage: 5 G, UNK
     Route: 041
     Dates: start: 20101130, end: 20101202
  22. PRIMOBOLAN-DEPOT INJ [Concomitant]
     Indication: MYELODYSPLASTIC SYNDROME
     Dosage: 15 MG, UNK
     Dates: start: 20100115, end: 20101106
  23. LASIX [Concomitant]
     Dosage: 20 MG, UNK
     Route: 048
     Dates: end: 20101202
  24. GLAKAY [Concomitant]
     Indication: MYELODYSPLASTIC SYNDROME
     Dosage: 45 MG, UNK
     Route: 048
     Dates: start: 20100115, end: 20101106
  25. MAGMITT [Concomitant]
     Dosage: 1980 MG, UNK
     Route: 048
     Dates: end: 20101205
  26. HERBESSOR R [Concomitant]
     Dosage: 200 MG, UNK
     Route: 048
     Dates: start: 20060701

REACTIONS (7)
  - SERUM FERRITIN INCREASED [None]
  - PNEUMONIA [None]
  - HYPERTHERMIA [None]
  - NEOPLASM PROGRESSION [None]
  - ENTERITIS INFECTIOUS [None]
  - NEOPLASM MALIGNANT [None]
  - DIARRHOEA [None]
